FAERS Safety Report 24774286 (Version 2)
Quarter: 2025Q1

REPORT INFORMATION
  Report Type: Spontaneous
  Country: US (occurrence: US)
  Receive Date: 20241225
  Receipt Date: 20250109
  Transmission Date: 20250409
  Serious: No
  Sender: BEIGENE
  Company Number: US-BEIGENE-BGN-2024-020565

PATIENT

DRUGS (2)
  1. BRUKINSA [Suspect]
     Active Substance: ZANUBRUTINIB
     Indication: Lymphoma
     Dosage: 2 PILLS, BID
  2. BRUKINSA [Suspect]
     Active Substance: ZANUBRUTINIB
     Dosage: 1 PILL, BID

REACTIONS (3)
  - Peripheral swelling [Recovering/Resolving]
  - Increased tendency to bruise [Recovering/Resolving]
  - Contusion [Recovering/Resolving]
